FAERS Safety Report 4446098-6 (Version None)
Quarter: 2004Q3

REPORT INFORMATION
  Report Type: 
  Country: None (occurrence: None)
  Receive Date: 20040903
  Receipt Date: 20040823
  Transmission Date: 20050211
  Serious: Yes (Disabling, Other)
  Sender: FDA-Public Use
  Company Number: 2004053609

PATIENT
  Age: 39 Year
  Sex: Male
  Weight: 83.9154 kg

DRUGS (4)
  1. NEURONTIN [Suspect]
     Indication: RESTLESS LEGS SYNDROME
     Dosage: 600 MG (300 MG, 1 IN 1 D), ORAL
     Route: 048
     Dates: start: 20030101
  2. LANSOPRAZOLE [Concomitant]
  3. BUDESONIDE (BUDESONIDE) [Concomitant]
  4. LORATADINE [Concomitant]

REACTIONS (7)
  - ACTIVITIES OF DAILY LIVING IMPAIRED [None]
  - BURNS SECOND DEGREE [None]
  - INSOMNIA [None]
  - MOVEMENT DISORDER [None]
  - PAIN [None]
  - PHOTOSENSITIVITY REACTION [None]
  - SUNBURN [None]
